FAERS Safety Report 8870399 (Version 1)
Quarter: 2012Q4

REPORT INFORMATION
  Report Type: Spontaneous
  Country: US (occurrence: None)
  Receive Date: 20121026
  Receipt Date: 20121026
  Transmission Date: 20130627
  Serious: Yes (Other)
  Sender: FDA-Public Use
  Company Number: None

PATIENT
  Age: 26 Year
  Sex: Female
  Weight: 137.44 kg

DRUGS (1)
  1. REGLAN [Suspect]
     Route: 042
     Dates: start: 20120719, end: 20120719

REACTIONS (3)
  - Eructation [None]
  - Erythema [None]
  - Sensation of pressure [None]
